FAERS Safety Report 8919509 (Version 4)
Quarter: 2013Q1

REPORT INFORMATION
  Report Type: Spontaneous
  Country: FR (occurrence: None)
  Receive Date: 20121114
  Receipt Date: 20121211
  Transmission Date: 20140127
  Serious: Yes (Hospitalization)
  Sender: FDA-Public Use
  Company Number: ACO_32861_2012

PATIENT
  Age: 48 Year
  Sex: Female

DRUGS (7)
  1. FAMPRIDINE-SR (FAMPRIDINE) TABLET [Suspect]
     Indication: MULTIPLE SCLEROSIS
     Route: 048
     Dates: start: 20120628
  2. SEROPLEX (ESCITALOPRAM OXALATE) [Concomitant]
  3. LYRICA (PREGABALIN) [Concomitant]
  4. LIORESAL (BACLOFEN) [Concomitant]
  5. LAMALINE (CAFFEINE, PAPAVER SOMNIFERUM LATEX, PARACETAMOL) [Concomitant]
  6. TOPALGIC (TRAMADOL HYDROCHLORIDE) [Concomitant]
  7. ENDOXAN (CYCLOPHOSPHAMIDE) [Concomitant]

REACTIONS (3)
  - Gait disturbance [None]
  - Sensory disturbance [None]
  - Muscle spasticity [None]
